FAERS Safety Report 4345765-2 (Version None)
Quarter: 2004Q2

REPORT INFORMATION
  Report Type: 
  Country: None (occurrence: None)
  Receive Date: 20040421
  Receipt Date: 20040405
  Transmission Date: 20050107
  Serious: Yes (Hospitalization)
  Sender: FDA-Public Use
  Company Number: 6008293

PATIENT
  Age: 55 Year
  Sex: Female

DRUGS (3)
  1. LEVOTHYROXINE SODIUM [Suspect]
     Dosage: 50 MCG, ORAL
     Route: 048
  2. FENOFIBRATE [Suspect]
     Dosage: ORAL
     Route: 048
  3. MEDIATOR (TABLETS) (BENFLUOREX HYDROCHLORIDE) [Suspect]
     Dosage: 150 MG, ORAL
     Route: 048
     Dates: start: 20040218, end: 20040301

REACTIONS (3)
  - PRURIGO [None]
  - RASH ERYTHEMATOUS [None]
  - TOXIC SKIN ERUPTION [None]
